FAERS Safety Report 8155969-9 (Version None)
Quarter: 2012Q1

REPORT INFORMATION
  Report Type: 
  Country: None (occurrence: None)
  Receive Date: 20120221
  Receipt Date: 20120221
  Transmission Date: 20120608
  Serious: Yes (Other)
  Sender: FDA-Public Use
  Company Number: None

PATIENT
  Sex: Female
  Weight: 136.0791 kg

DRUGS (2)
  1. FENTANYL [Suspect]
     Indication: PAIN
     Dosage: 25MCG/HR PATCH 1PATCH EVERY72HRS 061 TRANSDERMAL
     Route: 062
     Dates: start: 20120201, end: 20120202
  2. FENTANYL [Suspect]
     Indication: FIBROMYALGIA
     Dosage: 25MCG/HR PATCH 1PATCH EVERY72HRS 061 TRANSDERMAL
     Route: 062
     Dates: start: 20120201, end: 20120202

REACTIONS (1)
  - CHEST PAIN [None]
